FAERS Safety Report 23852094 (Version 2)
Quarter: 2024Q2

REPORT INFORMATION
  Report Type: Spontaneous
  Country: AR (occurrence: AR)
  Receive Date: 20240514
  Receipt Date: 20240522
  Transmission Date: 20240716
  Serious: Yes (Hospitalization, Other)
  Sender: FDA-Public Use
  Company Number: AR-GLAXOSMITHKLINE-AR2023AMR108834

PATIENT

DRUGS (2)
  1. ZEJULA [Suspect]
     Active Substance: NIRAPARIB
     Indication: Product used for unknown indication
     Dosage: UNK
     Dates: start: 20230302
  2. ZEJULA [Suspect]
     Active Substance: NIRAPARIB
     Indication: Product used for unknown indication
     Dosage: UNK

REACTIONS (8)
  - Noninfective oophoritis [Unknown]
  - Metastases to kidney [Unknown]
  - Laboratory test abnormal [Unknown]
  - Abdominal discomfort [Unknown]
  - Ill-defined disorder [Unknown]
  - Spondylitis [Unknown]
  - Pain [Unknown]
  - Renal pain [Unknown]
